FAERS Safety Report 10255950 (Version 1)
Quarter: 2014Q2

REPORT INFORMATION
  Report Type: Spontaneous
  Country: US (occurrence: US)
  Receive Date: 20140624
  Receipt Date: 20140624
  Transmission Date: 20141212
  Serious: Yes (Hospitalization)
  Sender: FDA-Public Use
  Company Number: US-GLAXOSMITHKLINE-A1078164A

PATIENT
  Age: 75 Year
  Sex: Female

DRUGS (9)
  1. ADVAIR [Suspect]
     Indication: CHRONIC OBSTRUCTIVE PULMONARY DISEASE
     Dosage: 1PUFF TWICE PER DAY
     Route: 055
     Dates: start: 2007
  2. IRON TABLET [Concomitant]
  3. VERAPAMIL [Concomitant]
  4. DIGOXIN [Concomitant]
  5. WATER PILL [Concomitant]
  6. STOOL SOFTENERS [Concomitant]
  7. NEBULIZER [Concomitant]
  8. SPIRIVA [Concomitant]
  9. UNSPECIFIED MEDICATIONS [Concomitant]

REACTIONS (7)
  - Cardiac operation [Unknown]
  - Heart valve replacement [Unknown]
  - Pneumonia [Unknown]
  - Sepsis [Unknown]
  - Ill-defined disorder [Not Recovered/Not Resolved]
  - Muscle spasms [Unknown]
  - Movement disorder [Unknown]
